FAERS Safety Report 5104884-3 (Version None)
Quarter: 2006Q3

REPORT INFORMATION
  Report Type: 
  Country: None (occurrence: None)
  Receive Date: 20060914
  Receipt Date: 20060824
  Transmission Date: 20061208
  Serious: Yes (Other)
  Sender: FDA-Public Use
  Company Number: 2006AP04021

PATIENT
  Age: 54 Year
  Sex: Female

DRUGS (2)
  1. ATACAND [Suspect]
     Indication: HYPERTENSION
     Route: 048
     Dates: start: 20060701
  2. LOSEC [Concomitant]
     Dates: start: 20030101

REACTIONS (1)
  - LIBIDO DECREASED [None]
